FAERS Safety Report 20950310 (Version 1)
Quarter: 2022Q2

REPORT INFORMATION
  Report Type: Spontaneous
  Country: US (occurrence: None)
  Receive Date: 20220610
  Receipt Date: 20220610
  Transmission Date: 20220721
  Serious: Yes (Hospitalization)
  Sender: FDA-Public Use
  Company Number: None

PATIENT
  Age: 36 Year
  Sex: Female
  Weight: 121 kg

DRUGS (14)
  1. CAPECITABINE [Suspect]
     Active Substance: CAPECITABINE
     Indication: Breast cancer female
     Dosage: FREQUENCY : TWICE A DAY;?
     Route: 048
  2. AMLODIPINE [Concomitant]
     Active Substance: AMLODIPINE BESYLATE
  3. BESYLATE ORAL TABLET [Concomitant]
  4. DEXAMETHASONE [Concomitant]
     Active Substance: DEXAMETHASONE
  5. ELIQUIS ORAL TABLET [Concomitant]
  6. ENOXAPARIN [Concomitant]
     Active Substance: ENOXAPARIN
  7. EXEMESTANE ORAL TABLET [Concomitant]
  8. HYDROMORPHONE HCI ER ORAL TABLET [Concomitant]
  9. VITAMINS [Concomitant]
     Active Substance: VITAMINS
  10. OLANZAPINE ORAL TABLET [Concomitant]
  11. PALBOCICLIB [Concomitant]
     Active Substance: PALBOCICLIB
  12. PROCHLORPERAZINE MALEATE ORAL TABLET [Concomitant]
  13. TRAMADOL [Concomitant]
     Active Substance: TRAMADOL
  14. VITAMIN B12 [Concomitant]
     Active Substance: CYANOCOBALAMIN

REACTIONS (1)
  - Pleural effusion [None]

NARRATIVE: CASE EVENT DATE: 20220601
